FAERS Safety Report 9823301 (Version 3)
Quarter: 2014Q1

REPORT INFORMATION
  Report Type: Report from Study
  Country: JP (occurrence: JP)
  Receive Date: 20140116
  Receipt Date: 20140204
  Transmission Date: 20141002
  Serious: Yes (Hospitalization, Other)
  Sender: FDA-Public Use
  Company Number: JP-TAKEDA-2013TUS003401

PATIENT
  Sex: 0

DRUGS (8)
  1. FEBURIC [Suspect]
     Indication: GOUT
     Dosage: 20 MG, QD
     Route: 048
     Dates: start: 20121025
  2. OLMETEC [Concomitant]
     Indication: HYPERTENSION
     Dosage: 20 MG, QD
     Route: 048
  3. SELARA [Concomitant]
     Indication: HYPERTENSION
     Dosage: 50 MG, QD
     Route: 048
     Dates: start: 20091117
  4. NORVASC [Concomitant]
     Indication: HYPERTENSION
     Dosage: 5 MG, QD
     Route: 048
  5. LIPITOR [Concomitant]
     Indication: HYPERCHOLESTEROLAEMIA
     Dosage: 5 MG, QD
     Route: 048
     Dates: start: 200904
  6. NEWTOLIDE [Concomitant]
     Indication: HYPERTENSION
     Dosage: 6.25 MG, QOD
     Route: 048
  7. NELBIS [Concomitant]
     Indication: DIABETES MELLITUS
     Dosage: 750 MG, QD
     Route: 048
     Dates: start: 20110412
  8. ACINON [Concomitant]
     Indication: GASTROOESOPHAGEAL REFLUX DISEASE
     Dosage: 200 MG, QD
     Route: 048
     Dates: start: 20130410

REACTIONS (1)
  - Cerebral infarction [Recovering/Resolving]
